FAERS Safety Report 6517481-X (Version None)
Quarter: 2009Q4

REPORT INFORMATION
  Report Type: 
  Country: None (occurrence: None)
  Receive Date: 20091224
  Receipt Date: 20091210
  Transmission Date: 20100525
  Serious: Yes (Hospitalization, Other)
  Sender: FDA-Public Use
  Company Number: US-ELI_LILLY_AND_COMPANY-US200912002926

PATIENT
  Sex: Female

DRUGS (12)
  1. FORTEO [Suspect]
     Indication: OSTEOPOROSIS
     Dosage: 20 UG, DAILY (1/D)
     Dates: start: 20090601
  2. FORTEO [Suspect]
     Dosage: 20 UG, DAILY (1/D)
     Dates: start: 20090601
  3. FORTEO [Suspect]
     Dosage: 20 UG, DAILY (1/D)
     Dates: start: 20090601
  4. FORTEO [Suspect]
     Dosage: 20 UG, DAILY (1/D)
     Dates: start: 20090601
  5. FORTEO [Suspect]
     Dosage: 20 UG, DAILY (1/D)
     Dates: start: 20090601
  6. VICODIN [Concomitant]
  7. PREMARIN [Concomitant]
  8. THYROID TAB [Concomitant]
  9. MULTI-VITAMIN [Concomitant]
  10. CALCIUM WITH VITAMIN D /00944201/ [Concomitant]
  11. BABY ASPIRIN [Concomitant]
  12. LOVAZA [Concomitant]

REACTIONS (8)
  - ARTHRITIS [None]
  - FALL [None]
  - PAIN [None]
  - PAIN IN EXTREMITY [None]
  - SPINAL FRACTURE [None]
  - UPPER LIMB FRACTURE [None]
  - VITAMIN D DECREASED [None]
  - WEIGHT DECREASED [None]
